FAERS Safety Report 7041073-X (Version None)
Quarter: 2010Q4

REPORT INFORMATION
  Report Type: 
  Country: None (occurrence: None)
  Receive Date: 20101013
  Receipt Date: 20101004
  Transmission Date: 20110411
  Serious: No
  Sender: FDA-Public Use
  Company Number: LT-ASTRAZENECA-2010SE47583

PATIENT
  Age: 29 Year
  Sex: Female

DRUGS (5)
  1. SEROQUEL [Suspect]
     Indication: SCHIZOPHRENIA
     Route: 048
     Dates: start: 20080301
  2. SEROQUEL [Suspect]
     Route: 048
     Dates: start: 20090801
  3. SEROQUEL [Suspect]
     Route: 048
  4. BROMKRIPTIN [Concomitant]
     Indication: HYPERPROLACTINAEMIA
     Route: 048
     Dates: start: 20100101
  5. AMISULPRIDE [Concomitant]
     Dosage: 400 MG

REACTIONS (1)
  - LEUKOPENIA [None]
